FAERS Safety Report 25533965 (Version 1)
Quarter: 2025Q3

REPORT INFORMATION
  Report Type: Spontaneous
  Country: US (occurrence: None)
  Receive Date: 20250708
  Receipt Date: 20250708
  Transmission Date: 20251020
  Serious: Yes (Other)
  Sender: FDA-CTU
  Company Number: None

PATIENT
  Sex: Male

DRUGS (6)
  1. ACTEMRA ACTPEN [Suspect]
     Active Substance: TOCILIZUMAB
     Indication: Rheumatoid arthritis
     Dosage: FREQUENCY : WEEKLY;?
     Route: 058
     Dates: start: 20250121
  2. ASCORBIC ACD TAB 1 000MG [Concomitant]
  3. ASPIRIN CHW 81MG [Concomitant]
  4. CALC CIT +D3 TAB 250-200 [Concomitant]
  5. FISH OIL CAP 1000MG [Concomitant]
  6. VITAMIN D3 TAB 5000UNIT [Concomitant]

REACTIONS (1)
  - Limb operation [None]
